FAERS Safety Report 24452320 (Version 2)
Quarter: 2025Q1

REPORT INFORMATION
  Report Type: Spontaneous
  Country: US (occurrence: US)
  Receive Date: 20241017
  Receipt Date: 20250301
  Transmission Date: 20250408
  Serious: No
  Sender: SANOFI AVENTIS
  Company Number: US-SA-2024SA286169

PATIENT
  Sex: Female
  Weight: 73.64 kg

DRUGS (13)
  1. FABRAZYME [Suspect]
     Active Substance: AGALSIDASE BETA
     Indication: Fabry^s disease
     Dosage: 75 MG, QOW
     Route: 042
     Dates: start: 20220428
  2. LISINOPRIL [Concomitant]
     Active Substance: LISINOPRIL
  3. LIPITOR [Concomitant]
     Active Substance: ATORVASTATIN CALCIUM
  4. TYLENOL EXTRA STRENGTH [Concomitant]
     Active Substance: ACETAMINOPHEN
  5. VITAMIN D NOS [Concomitant]
     Active Substance: CHOLECALCIFEROL\ERGOCALCIFEROL
  6. SODIUM CHLORIDE [Concomitant]
     Active Substance: SODIUM CHLORIDE
  7. SOLU-MEDROL [Concomitant]
     Active Substance: METHYLPREDNISOLONE SODIUM SUCCINATE
  8. ACETAMINOPHEN [Concomitant]
     Active Substance: ACETAMINOPHEN
  9. EPINEPHRINE [Concomitant]
     Active Substance: EPINEPHRINE
  10. Lmx [Concomitant]
  11. Sterilised water for injection [Concomitant]
  12. SODIUM CHLORIDE [Concomitant]
     Active Substance: SODIUM CHLORIDE
  13. DIPHENHYDRAMINE HYDROCHLORIDE [Concomitant]
     Active Substance: DIPHENHYDRAMINE HYDROCHLORIDE

REACTIONS (2)
  - Streptococcal infection [Unknown]
  - Sinusitis [Unknown]
